FAERS Safety Report 9297027 (Version 1)
Quarter: 2013Q2

REPORT INFORMATION
  Report Type: Spontaneous
  Country: US (occurrence: US)
  Receive Date: 20130519
  Receipt Date: 20130519
  Transmission Date: 20140414
  Serious: No
  Sender: FDA-Public Use
  Company Number: US-TEVA-402183USA

PATIENT
  Age: 61 Year
  Sex: Male
  Weight: 93.98 kg

DRUGS (8)
  1. ACTIQ [Suspect]
     Indication: NEOPLASM MALIGNANT
  2. OXYCODONE [Concomitant]
     Indication: PAIN
     Route: 048
  3. OXYCONTIN [Concomitant]
     Indication: PAIN
     Route: 048
  4. METOPROLOL [Concomitant]
     Indication: HYPERTENSION
  5. DIGOXIN [Concomitant]
     Indication: CARDIAC DISORDER
  6. AMIODARONE [Concomitant]
     Indication: CARDIAC DISORDER
  7. FUROSEMIDE [Concomitant]
     Indication: OEDEMA PERIPHERAL
  8. NEXIUM [Concomitant]
     Indication: GASTROOESOPHAGEAL REFLUX DISEASE

REACTIONS (1)
  - Pain [Not Recovered/Not Resolved]
